FAERS Safety Report 18188412 (Version 1)
Quarter: 2020Q3

REPORT INFORMATION
  Report Type: Spontaneous
  Country: JP (occurrence: JP)
  Receive Date: 20200824
  Receipt Date: 20200824
  Transmission Date: 20201103
  Serious: Yes (Hospitalization, Other)
  Sender: FDA-Public Use
  Company Number: JP-PFIZER INC-2020323102

PATIENT

DRUGS (1)
  1. ALDACTONE A [Suspect]
     Active Substance: SPIRONOLACTONE
     Route: 048

REACTIONS (1)
  - Haemolytic anaemia [Unknown]
